FAERS Safety Report 16410965 (Version 6)
Quarter: 2019Q3

REPORT INFORMATION
  Report Type: Report from Study
  Country: BR (occurrence: BR)
  Receive Date: 20190610
  Receipt Date: 20190917
  Transmission Date: 20191004
  Serious: Yes (Hospitalization, Other)
  Sender: FDA-Public Use
  Company Number: BR-GLAXOSMITHKLINE-BR2019GSK102517

PATIENT
  Sex: Female
  Weight: 72 kg

DRUGS (1)
  1. MEPOLIZUMAB [Suspect]
     Active Substance: MEPOLIZUMAB
     Indication: ASTHMA
     Dosage: 100 MG, UNK
     Dates: start: 20190220

REACTIONS (6)
  - Depression [Unknown]
  - Drug ineffective [Unknown]
  - Asthmatic crisis [Unknown]
  - Asthma [Unknown]
  - Respiratory failure [Unknown]
  - Anxiety [Unknown]
